FAERS Safety Report 5090276-2 (Version None)
Quarter: 2006Q3

REPORT INFORMATION
  Report Type: 
  Country: None (occurrence: None)
  Receive Date: 20060828
  Receipt Date: 20060703
  Transmission Date: 20061208
  Serious: No
  Sender: FDA-Public Use
  Company Number: US-GLAXOSMITHKLINE-A0610983A

PATIENT
  Age: 62 Year
  Sex: Female

DRUGS (4)
  1. WELLBUTRIN XL [Suspect]
     Indication: DEPRESSION
     Dosage: 150MG AT NIGHT
     Route: 048
     Dates: start: 20060626
  2. XANAX [Concomitant]
  3. VERAPAMIL [Concomitant]
  4. HYZAAR [Concomitant]

REACTIONS (2)
  - INSOMNIA [None]
  - POOR QUALITY DRUG ADMINISTERED [None]
